FAERS Safety Report 9677641 (Version 3)
Quarter: 2014Q1

REPORT INFORMATION
  Report Type: Spontaneous
  Country: NL (occurrence: NL)
  Receive Date: 20131108
  Receipt Date: 20140127
  Transmission Date: 20141002
  Serious: Yes (Hospitalization)
  Sender: FDA-Public Use
  Company Number: NL-NOVOPROD-391813

PATIENT
  Age: 83 Year
  Sex: Male
  Weight: 69 kg

DRUGS (8)
  1. NOVOMIX 30 FLEXPEN [Suspect]
     Indication: PRODUCT USED FOR UNKNOWN INDICATION
     Dosage: UNKNOWN
     Route: 065
  2. NOVOMIX 30 FLEXPEN [Suspect]
     Dosage: 24 U IN MORNING, 20 UNITS IN EVENING
     Route: 065
     Dates: start: 20130920, end: 20131027
  3. METFORMIN [Concomitant]
     Dosage: 850 MG, BID
  4. ASA [Concomitant]
     Indication: PRODUCT USED FOR UNKNOWN INDICATION
     Dosage: 80 MG, QD
     Route: 065
  5. HYDROCHLOROTHIAZIDE [Concomitant]
     Dosage: 12.5 MG, QD
     Route: 065
  6. AMLODIPINE [Concomitant]
     Dosage: 5 MG, QD
  7. PERINDOPRIL [Concomitant]
     Dosage: 4 MG, QD
  8. ATORVASTATIN [Concomitant]
     Dosage: 40 MG, QD

REACTIONS (5)
  - Chest pain [Recovered/Resolved]
  - Blood glucose increased [Recovered/Resolved]
  - Oesophageal pain [Recovered/Resolved]
  - Fatigue [Recovered/Resolved]
  - Decreased appetite [Recovered/Resolved]
